FAERS Safety Report 21531439 (Version 1)
Quarter: 2022Q4

REPORT INFORMATION
  Report Type: Spontaneous
  Country: None (occurrence: US)
  Receive Date: 20221031
  Receipt Date: 20221031
  Transmission Date: 20230113
  Serious: Yes (Disabling)
  Sender: FDA-Public Use
  Company Number: US-Acella Pharmaceuticals, LLC-2134334

PATIENT
  Age: 43 Year
  Sex: Female

DRUGS (1)
  1. NP THYROID [Suspect]
     Active Substance: LEVOTHYROXINE\LIOTHYRONINE
     Indication: Autoimmune thyroiditis
     Dates: start: 20220101

REACTIONS (4)
  - Blood thyroid stimulating hormone increased [Unknown]
  - Hypothyroidism [Unknown]
  - Loss of personal independence in daily activities [Unknown]
  - Product measured potency issue [Unknown]

NARRATIVE: CASE EVENT DATE: 20220816
